FAERS Safety Report 5162457-0 (Version None)
Quarter: 2006Q4

REPORT INFORMATION
  Report Type: 
  Country: None (occurrence: None)
  Receive Date: 20061128
  Receipt Date: 20061128
  Transmission Date: 20070319
  Serious: Yes (Other)
  Sender: FDA-Public Use
  Company Number: None

PATIENT
  Age: 58 Year
  Sex: Female
  Weight: 53 kg

DRUGS (12)
  1. ZOSYN [Suspect]
     Indication: PNEUMONIA ASPIRATION
     Dosage: 2.25 GRAMS EVERY 8 HOURS IV
     Route: 042
     Dates: start: 20061101, end: 20061106
  2. LISINOPRIL [Concomitant]
  3. NOVOLOG [Concomitant]
  4. PREDNISONE TAB [Concomitant]
  5. AMLODIPINE [Concomitant]
  6. TAMOXIFEN CITRATE [Concomitant]
  7. PLAVIX [Concomitant]
  8. PRAMIPEXOLE DIHYDROCHLORIDE [Concomitant]
  9. MIRTAZAPINE [Concomitant]
  10. VANCOMYCIN [Concomitant]
  11. DILANTIN [Concomitant]
  12. METOPROLOL SUCCINATE [Concomitant]

REACTIONS (2)
  - LEUKOPENIA [None]
  - THROMBOCYTOPENIA [None]
